FAERS Safety Report 11968441 (Version 1)
Quarter: 2016Q1

REPORT INFORMATION
  Report Type: Spontaneous
  Country: AR (occurrence: AR)
  Receive Date: 20160128
  Receipt Date: 20160128
  Transmission Date: 20160526
  Serious: Yes (Other)
  Sender: FDA-Public Use
  Company Number: AR-AMGEN-ARGSP2016005200

PATIENT
  Age: 79 Year
  Sex: Male

DRUGS (1)
  1. ENBREL [Suspect]
     Active Substance: ETANERCEPT
     Indication: PSORIASIS
     Dosage: 50 MG, WEEKLY
     Route: 065
     Dates: start: 20061109

REACTIONS (3)
  - Skin discolouration [Unknown]
  - Vascular stent occlusion [Unknown]
  - Cardiovascular disorder [Not Recovered/Not Resolved]

NARRATIVE: CASE EVENT DATE: 201510
